FAERS Safety Report 14124623 (Version 1)
Quarter: 2017Q4

REPORT INFORMATION
  Report Type: Spontaneous
  Country: US (occurrence: US)
  Receive Date: 20171025
  Receipt Date: 20171025
  Transmission Date: 20180321
  Serious: No
  Sender: FDA-Public Use
  Company Number: US-AUROBINDO-AUR-APU-2016-12160

PATIENT
  Sex: Male

DRUGS (2)
  1. CARVEDILOL TABLETS 25 MG [Suspect]
     Active Substance: CARVEDILOL
     Indication: CARDIAC DISORDER
     Dosage: 25 MG, TWO TIMES A DAY
     Route: 048
     Dates: start: 20160820, end: 20170417
  2. LASIX [Concomitant]
     Active Substance: FUROSEMIDE
     Indication: PRODUCT USED FOR UNKNOWN INDICATION
     Dosage: 40 MG, UNK
     Route: 065

REACTIONS (1)
  - Weight increased [Recovering/Resolving]
